FAERS Safety Report 10656465 (Version 1)
Quarter: 2014Q4

REPORT INFORMATION
  Report Type: Spontaneous
  Country: AR (occurrence: AR)
  Receive Date: 20141216
  Receipt Date: 20141216
  Transmission Date: 20150529
  Serious: Yes (Death, Other)
  Sender: FDA-Public Use
  Company Number: AR-B.I. PHARMACEUTICALS,INC./RIDGEFIELD-2014-BI-60695GD

PATIENT
  Age: 71 Year
  Sex: Female

DRUGS (3)
  1. AFATINIB [Suspect]
     Active Substance: AFATINIB
     Indication: LUNG ADENOCARCINOMA METASTATIC
     Dosage: 40 MG
     Route: 048
     Dates: start: 201101, end: 201108
  2. ERLOTINIB [Suspect]
     Active Substance: ERLOTINIB
     Indication: LUNG ADENOCARCINOMA METASTATIC
     Route: 065
     Dates: start: 201208, end: 201209
  3. GEFITINIB [Suspect]
     Active Substance: GEFITINIB
     Indication: LUNG ADENOCARCINOMA METASTATIC
     Route: 065
     Dates: start: 201111, end: 201206

REACTIONS (5)
  - Pneumonia [Fatal]
  - Diarrhoea [Unknown]
  - Metastases to central nervous system [Unknown]
  - Diabetic metabolic decompensation [Fatal]
  - Skin toxicity [Unknown]

NARRATIVE: CASE EVENT DATE: 201108
